FAERS Safety Report 19777664 (Version 1)
Quarter: 2021Q3

REPORT INFORMATION
  Report Type: Report from Study
  Country: IN (occurrence: IN)
  Receive Date: 20210902
  Receipt Date: 20210902
  Transmission Date: 20211014
  Serious: Yes (Other)
  Sender: FDA-Public Use
  Company Number: IN-GILEAD-2021-0546329

PATIENT
  Age: 55 Year
  Sex: Male

DRUGS (3)
  1. EFAVIRENZ. [Concomitant]
     Active Substance: EFAVIRENZ
  2. LAMIVUDINE. [Concomitant]
     Active Substance: LAMIVUDINE
  3. TENOFOVIR DISOPROXIL FUMARATE. [Suspect]
     Active Substance: TENOFOVIR DISOPROXIL FUMARATE
     Indication: HIV INFECTION
     Dosage: UNK
     Route: 065
     Dates: start: 201501

REACTIONS (2)
  - Drug ineffective [Unknown]
  - Renal tubular acidosis [Unknown]
